FAERS Safety Report 12701068 (Version 1)
Quarter: 2016Q3

REPORT INFORMATION
  Report Type: Spontaneous
  Country: US (occurrence: None)
  Receive Date: 20160830
  Receipt Date: 20160830
  Transmission Date: 20161109
  Serious: No
  Sender: FDA-Public Use
  Company Number: None

PATIENT
  Age: 22 Year
  Sex: Female
  Weight: 58.51 kg

DRUGS (1)
  1. TRI-PREVIFEM [Suspect]
     Active Substance: ETHINYL ESTRADIOL\NORGESTIMATE
     Indication: CONTRACEPTION
     Route: 048
     Dates: start: 20131018, end: 20160731

REACTIONS (4)
  - Abdominal discomfort [None]
  - Vomiting [None]
  - Metrorrhagia [None]
  - Skin disorder [None]

NARRATIVE: CASE EVENT DATE: 20150715
